FAERS Safety Report 17181379 (Version 1)
Quarter: 2019Q4

REPORT INFORMATION
  Report Type: Spontaneous
  Country: US (occurrence: US)
  Receive Date: 20191220
  Receipt Date: 20191220
  Transmission Date: 20200122
  Serious: No
  Sender: FDA-Public Use
  Company Number: US-ASTRAZENECA-2019SF84086

PATIENT
  Age: 48 Year
  Sex: Male

DRUGS (1)
  1. PRILOSEC OTC [Suspect]
     Active Substance: OMEPRAZOLE MAGNESIUM
     Indication: ULCER
     Route: 048

REACTIONS (6)
  - Inappropriate schedule of product administration [Unknown]
  - Prescribed overdose [Unknown]
  - Dizziness [Recovering/Resolving]
  - Product use in unapproved indication [Unknown]
  - Palpitations [Recovered/Resolved]
  - Off label use [Unknown]

NARRATIVE: CASE EVENT DATE: 20191202
